FAERS Safety Report 5458693-6 (Version None)
Quarter: 2007Q3

REPORT INFORMATION
  Report Type: 
  Country: None (occurrence: None)
  Receive Date: 20070919
  Receipt Date: 20070416
  Transmission Date: 20080115
  Serious: No
  Sender: FDA-Public Use
  Company Number: US-ASTRAZENECA-2007UW07400

PATIENT
  Age: 45 Year
  Sex: Male

DRUGS (1)
  1. SEROQUEL [Suspect]
     Indication: BIPOLAR DISORDER
     Dosage: 200MG QAM; 400MG QHS
     Route: 048

REACTIONS (5)
  - AGGRESSION [None]
  - AGITATION [None]
  - ANGER [None]
  - LIBIDO DECREASED [None]
  - SOMNOLENCE [None]
